FAERS Safety Report 4696539-4 (Version None)
Quarter: 2005Q2

REPORT INFORMATION
  Report Type: 
  Country: None (occurrence: None)
  Receive Date: 20050620
  Receipt Date: 20050610
  Transmission Date: 20051028
  Serious: Yes (Hospitalization, Other)
  Sender: FDA-Public Use
  Company Number: 2005087219

PATIENT
  Age: 69 Year
  Sex: Female
  Weight: 72.5755 kg

DRUGS (9)
  1. LIPITOR [Suspect]
     Indication: BLOOD CHOLESTEROL INCREASED
     Dosage: 40 MG (40 MG, 1 IN 1 D), ORAL
     Route: 048
     Dates: start: 20050101
  2. ATENOLOL [Concomitant]
  3. LANTUS (INSULN GLARGINE) [Concomitant]
  4. PLAVIX [Concomitant]
  5. LEVOXYL [Concomitant]
  6. ADA (ACETYLSALICYLIC ACID) [Concomitant]
  7. PRANDIN [Concomitant]
  8. NITRO PATCH (GLYCERYL TRINITRATE) [Concomitant]
  9. AVAPRO [Concomitant]

REACTIONS (5)
  - ABASIA [None]
  - AGITATION [None]
  - CRYING [None]
  - DEPRESSION [None]
  - MUSCULAR WEAKNESS [None]
